FAERS Safety Report 7278606-4 (Version None)
Quarter: 2011Q1

REPORT INFORMATION
  Report Type: 
  Country: None (occurrence: None)
  Receive Date: 20110207
  Receipt Date: 20110110
  Transmission Date: 20110831
  Serious: Yes (Other)
  Sender: FDA-Public Use
  Company Number: US-PFIZER INC-2011006635

PATIENT
  Sex: Female
  Weight: 70.3 kg

DRUGS (11)
  1. AMITIZA [Concomitant]
     Indication: CONSTIPATION
     Dosage: 24 UG, UNK
  2. WELLBUTRIN SR [Concomitant]
     Indication: DEPRESSION
     Dosage: 450 MG, 1X/DAY
  3. ADDERALL 10 [Concomitant]
     Indication: DEPRESSION
     Dosage: 60 MG, 1X/DAY
  4. CELEXA [Concomitant]
     Indication: DEPRESSION
     Dosage: 80 MG, 1X/DAY
  5. LYRICA [Suspect]
     Dosage: 100 MG AT NIGHT
     Dates: start: 20100701
  6. ACIPHEX [Concomitant]
     Indication: GASTROOESOPHAGEAL REFLUX DISEASE
     Dosage: 20 MG, 2X/DAY
  7. METFORMIN [Concomitant]
     Indication: POLYCYSTIC OVARIES
     Dosage: 500 MG, 2X/DAY
  8. TOPAMAX [Concomitant]
     Indication: HEADACHE
     Dosage: 100 MG IN MORNING AND 200 MG AT NIGHT
  9. LYRICA [Suspect]
     Indication: RESTLESS LEGS SYNDROME
     Dosage: 75MG AT NIGHT
     Route: 048
  10. LASIX [Concomitant]
     Dosage: 20 MG, 1X/DAY
  11. FENTANYL [Concomitant]
     Indication: ABDOMINAL PAIN
     Dosage: 50 MG EVERY 3 DAYS

REACTIONS (2)
  - DRUG EFFECT DECREASED [None]
  - WEIGHT INCREASED [None]
